FAERS Safety Report 22743077 (Version 2)
Quarter: 2023Q4

REPORT INFORMATION
  Report Type: Spontaneous
  Country: CA (occurrence: CA)
  Receive Date: 20230724
  Receipt Date: 20231017
  Transmission Date: 20240109
  Serious: Yes (Other)
  Sender: FDA-Public Use
  Company Number: CA-ELI_LILLY_AND_COMPANY-CA202307008524

PATIENT
  Age: 6 Year
  Sex: Female

DRUGS (5)
  1. SOMATROPIN [Suspect]
     Active Substance: SOMATROPIN
     Indication: Short stature
     Dosage: UNK UNK, UNKNOWN
     Route: 058
  2. GENOTROPIN [Suspect]
     Active Substance: SOMATROPIN
     Indication: Short stature
     Dosage: 40 MG, DAILY
     Route: 058
     Dates: start: 20220705
  3. GENOTROPIN [Suspect]
     Active Substance: SOMATROPIN
     Dosage: 600 UG, 6/W  (DURING 90 DAYS)
     Route: 058
     Dates: end: 2023
  4. GENOTROPIN [Suspect]
     Active Substance: SOMATROPIN
     Dosage: 600 UG, 6/W
     Route: 058
     Dates: start: 2023
  5. GENOTROPIN [Suspect]
     Active Substance: SOMATROPIN
     Dosage: 800 UG, 6/W
     Route: 058
     Dates: start: 2023

REACTIONS (1)
  - Syncope [Unknown]

NARRATIVE: CASE EVENT DATE: 20230201
